FAERS Safety Report 9316211 (Version 3)
Quarter: 2013Q3

REPORT INFORMATION
  Report Type: Report from Study
  Country: BR (occurrence: BR)
  Receive Date: 20130530
  Receipt Date: 20130830
  Transmission Date: 20140515
  Serious: Yes (Other)
  Sender: FDA-Public Use
  Company Number: PHHY2013BR053293

PATIENT
  Sex: Female
  Weight: 50 kg

DRUGS (3)
  1. TEGRETOL CR [Suspect]
     Indication: ALCOHOL WITHDRAWAL SYNDROME
     Dosage: 200 MG, 5QD
  2. TEGRETOL CR [Suspect]
     Indication: OFF LABEL USE
     Dosage: 400 MG, UNK
     Route: 048
  3. RISPERIDONE [Suspect]
     Indication: MEMORY IMPAIRMENT
     Dosage: UNK UKN, BID

REACTIONS (2)
  - Convulsion [Recovered/Resolved]
  - Memory impairment [Recovering/Resolving]
